FAERS Safety Report 17189389 (Version 1)
Quarter: 2019Q4

REPORT INFORMATION
  Report Type: Spontaneous
  Country: US (occurrence: US)
  Receive Date: 20191223
  Receipt Date: 20191223
  Transmission Date: 20200122
  Serious: No
  Sender: FDA-Public Use
  Company Number: US-HORIZON-PRO-0282-2019

PATIENT
  Age: 25 Year
  Sex: Male

DRUGS (1)
  1. PROCYSBI [Suspect]
     Active Substance: CYSTEAMINE BITARTRATE
     Indication: CYSTINOSIS
     Dosage: 750MG TWICE DAILY
     Route: 048
     Dates: start: 20130819

REACTIONS (1)
  - Abdominal discomfort [Unknown]
